FAERS Safety Report 14202258 (Version 3)
Quarter: 2017Q4

REPORT INFORMATION
  Report Type: Spontaneous
  Country: JP (occurrence: JP)
  Receive Date: 20171117
  Receipt Date: 20171222
  Transmission Date: 20180321
  Serious: Yes (Life-Threatening, Hospitalization)
  Sender: FDA-Public Use
  Company Number: JP-ELI_LILLY_AND_COMPANY-JP201711006036

PATIENT
  Age: 47 Year
  Sex: Male
  Weight: 67 kg

DRUGS (8)
  1. MEILAX [Suspect]
     Active Substance: ETHYL LOFLAZEPATE
     Indication: ANXIETY DISORDER
     Dosage: 1 MG, DAILY
     Route: 048
     Dates: end: 20170214
  2. ZYLORIC [Concomitant]
     Active Substance: ALLOPURINOL
     Dosage: 100 MG, UNK
     Route: 048
     Dates: end: 20170214
  3. ZOPICLONE [Suspect]
     Active Substance: ZOPICLONE
     Indication: INSOMNIA
     Dosage: 7.5 MG, DAILY
     Route: 048
     Dates: end: 20170214
  4. ZYPREXA [Suspect]
     Active Substance: OLANZAPINE
     Indication: DEPRESSION
     Dosage: 10 MG, DAILY
     Route: 048
     Dates: end: 20170214
  5. LUDIOMIL [Suspect]
     Active Substance: MAPROTILINE HYDROCHLORIDE
     Indication: PRODUCT USED FOR UNKNOWN INDICATION
     Dosage: 30 MG, DAILY
     Route: 048
     Dates: end: 20170214
  6. AKINETON [Concomitant]
     Active Substance: BIPERIDEN HYDROCHLORIDE
     Dosage: 2 MG, DAILY
     Route: 048
     Dates: end: 20170214
  7. LENDORMIN [Suspect]
     Active Substance: BROTIZOLAM
     Indication: PRODUCT USED FOR UNKNOWN INDICATION
     Dosage: 0.25 MG, DAILY
     Route: 048
     Dates: end: 20170214
  8. PAXIL [Suspect]
     Active Substance: PAROXETINE HYDROCHLORIDE
     Indication: DEPRESSION
     Dosage: 30 MG, DAILY
     Route: 048
     Dates: end: 20170214

REACTIONS (6)
  - Blood pressure decreased [Recovered/Resolved]
  - Off label use [Unknown]
  - Appendicitis perforated [Recovered/Resolved]
  - Septic shock [Recovering/Resolving]
  - Disseminated intravascular coagulation [Recovering/Resolving]
  - Peritonitis [Recovering/Resolving]
